FAERS Safety Report 8079835-2 (Version None)
Quarter: 2012Q1

REPORT INFORMATION
  Report Type: 
  Country: None (occurrence: None)
  Receive Date: 20120128
  Receipt Date: 20110831
  Transmission Date: 20120608
  Serious: No
  Sender: FDA-Public Use
  Company Number: US-ABBOTT-11P-163-0850804-00

PATIENT
  Sex: Male

DRUGS (2)
  1. HUMIRA [Suspect]
     Indication: CROHN'S DISEASE
     Dosage: TAPERING
     Dates: start: 20110301
  2. HUMIRA [Suspect]

REACTIONS (7)
  - OESOPHAGITIS [None]
  - BLOOD TESTOSTERONE DECREASED [None]
  - ABDOMINAL DISTENSION [None]
  - FATIGUE [None]
  - EPIGASTRIC DISCOMFORT [None]
  - DIARRHOEA [None]
  - GASTRITIS [None]
